APPROVED DRUG PRODUCT: NICOTINE POLACRILEX
Active Ingredient: NICOTINE POLACRILEX
Strength: EQ 2MG BASE
Dosage Form/Route: TROCHE/LOZENGE;ORAL
Application: A207868 | Product #001
Applicant: PLD ACQUISITIONS LLC DBA AVEMA PHARMA SOLUTIONS
Approved: Feb 7, 2019 | RLD: No | RS: No | Type: OTC